FAERS Safety Report 25746996 (Version 3)
Quarter: 2025Q3

REPORT INFORMATION
  Report Type: Spontaneous
  Country: US (occurrence: US)
  Receive Date: 20250901
  Receipt Date: 20250911
  Transmission Date: 20251020
  Serious: No
  Sender: SANOFI AVENTIS
  Company Number: US-SA-2025SA259225

PATIENT
  Age: 48 Year
  Sex: Female

DRUGS (2)
  1. DUPIXENT [Suspect]
     Active Substance: DUPILUMAB
     Indication: Dermatitis atopic
     Route: 058
     Dates: start: 202506, end: 202506
  2. DUPIXENT [Suspect]
     Active Substance: DUPILUMAB
     Dosage: 300 MG, QOW
     Route: 058
     Dates: start: 2025

REACTIONS (4)
  - Injection site pain [Not Recovered/Not Resolved]
  - Injection site swelling [Recovered/Resolved]
  - Injection site pruritus [Recovered/Resolved]
  - Product preparation error [Unknown]

NARRATIVE: CASE EVENT DATE: 20250601
